FAERS Safety Report 6231707-1 (Version None)
Quarter: 2009Q2

REPORT INFORMATION
  Report Type: 
  Country: None (occurrence: None)
  Receive Date: 20090616
  Receipt Date: 20090601
  Transmission Date: 20091009
  Serious: Yes (Other)
  Sender: FDA-Public Use
  Company Number: US-GENENTECH-284802

PATIENT

DRUGS (4)
  1. RITUXIMAB [Suspect]
     Indication: LYMPHOMA
     Dosage: 375 MG/M2, Q3W
     Route: 065
  2. GEMCITABINE [Suspect]
     Indication: LYMPHOMA
     Dosage: 1000 MG/M2, DAY1+8/Q3W
  3. CARBOPLATIN [Suspect]
     Indication: LYMPHOMA
     Dosage: 5 AUC, UNK
  4. DEXAMETHASONE [Suspect]
     Indication: LYMPHOMA
     Dosage: 40 MG, UNK

REACTIONS (9)
  - CARDIOTOXICITY [None]
  - CARDIOVASCULAR DISORDER [None]
  - DISEASE PROGRESSION [None]
  - FEBRILE NEUTROPENIA [None]
  - HAEMORRHAGE [None]
  - INFECTION [None]
  - LYMPHOMA [None]
  - NEUTROPENIA [None]
  - THROMBOCYTOPENIA [None]
